FAERS Safety Report 14739078 (Version 1)
Quarter: 2018Q2

REPORT INFORMATION
  Report Type: Spontaneous
  Country: FR (occurrence: FR)
  Receive Date: 20180410
  Receipt Date: 20180410
  Transmission Date: 20180711
  Serious: Yes (Disabling, Other)
  Sender: FDA-Public Use
  Company Number: FR-CONCORDIA PHARMACEUTICALS INC.-E2B_00009953

PATIENT
  Age: 53 Year
  Sex: Female
  Weight: 62 kg

DRUGS (4)
  1. PREDNISOLONE. [Suspect]
     Active Substance: PREDNISOLONE
     Indication: COUGH
     Route: 048
     Dates: start: 20171210, end: 20171226
  2. PREDNISOLONE. [Suspect]
     Active Substance: PREDNISOLONE
     Indication: COUGH
     Route: 048
     Dates: start: 1978
  3. PREDNISOLONE. [Suspect]
     Active Substance: PREDNISOLONE
     Indication: ASTHMA
     Route: 048
     Dates: start: 1978
  4. PREDNISOLONE. [Suspect]
     Active Substance: PREDNISOLONE
     Indication: ASTHMA
     Route: 048
     Dates: start: 20171210, end: 20171226

REACTIONS (11)
  - Breath sounds abnormal [Unknown]
  - Hunger [Unknown]
  - Bedridden [Not Recovered/Not Resolved]
  - Dyspnoea [Unknown]
  - Condition aggravated [Not Recovered/Not Resolved]
  - Drug ineffective [Unknown]
  - Nasopharyngitis [Not Recovered/Not Resolved]
  - Walking disability [Not Recovered/Not Resolved]
  - Oedema [Unknown]
  - Pain [Recovered/Resolved]
  - Asthma [Recovered/Resolved]

NARRATIVE: CASE EVENT DATE: 20171210
